FAERS Safety Report 7150307-2 (Version None)
Quarter: 2010Q4

REPORT INFORMATION
  Report Type: 
  Country: None (occurrence: None)
  Receive Date: 20101123
  Receipt Date: 20101014
  Transmission Date: 20110411
  Serious: No
  Sender: FDA-Public Use
  Company Number: 020406

PATIENT
  Sex: Female

DRUGS (1)
  1. CIMZIA [Suspect]
     Indication: CROHN'S DISEASE
     Dosage: 200 MG 1X2 WEEKS SUBCUTANEOUS
     Route: 058
     Dates: start: 20090313

REACTIONS (2)
  - DIARRHOEA [None]
  - NAUSEA [None]
